FAERS Safety Report 6978010-X (Version None)
Quarter: 2010Q3

REPORT INFORMATION
  Report Type: 
  Country: None (occurrence: None)
  Receive Date: 20100913
  Receipt Date: 20100827
  Transmission Date: 20110219
  Serious: No
  Sender: FDA-Public Use
  Company Number: US-PFIZER INC-2010096899

PATIENT
  Sex: Male

DRUGS (2)
  1. FLAGYL [Suspect]
  2. DIFLUCAN [Suspect]
     Indication: FUNGAL INFECTION

REACTIONS (1)
  - ORAL FUNGAL INFECTION [None]
